FAERS Safety Report 6762049-3 (Version None)
Quarter: 2010Q2

REPORT INFORMATION
  Report Type: 
  Country: None (occurrence: None)
  Receive Date: 20100609
  Receipt Date: 20100601
  Transmission Date: 20101027
  Serious: Yes (Hospitalization)
  Sender: FDA-Public Use
  Company Number: FR-B.I. PHARMACEUTICALS,INC./RIDGEFIELD-2010-BP-01709YA

PATIENT
  Sex: Male

DRUGS (6)
  1. TAMSULOSIN HCL [Suspect]
     Indication: BLADDER CANCER
     Route: 048
     Dates: end: 20100114
  2. ENALAPRIL MALEATE AND HYDROCHLOROTHIAZIDE [Suspect]
     Indication: PULMONARY ARTERIAL HYPERTENSION
     Route: 048
     Dates: end: 20100110
  3. PLAVIX [Suspect]
     Indication: TRANSIENT ISCHAEMIC ATTACK
     Route: 048
     Dates: end: 20100114
  4. METFORMIN HCL [Suspect]
     Indication: TYPE 2 DIABETES MELLITUS
     Route: 048
  5. ACARBOSE [Suspect]
     Indication: TYPE 2 DIABETES MELLITUS
     Route: 048
  6. VITAMIN B12 NOS (VITAMIN B12 NOS) [Concomitant]

REACTIONS (2)
  - DERMATITIS EXFOLIATIVE [None]
  - LICHENOID KERATOSIS [None]
